FAERS Safety Report 10184744 (Version 1)
Quarter: 2014Q2

REPORT INFORMATION
  Report Type: Spontaneous
  Country: MK (occurrence: None)
  Receive Date: 20140519
  Receipt Date: 20140519
  Transmission Date: 20141212
  Serious: Yes (Other)
  Sender: FDA-Public Use
  Company Number: 7290860

PATIENT
  Sex: 0

DRUGS (1)
  1. EUTHYROX [Suspect]
     Indication: AUTOIMMUNE THYROIDITIS

REACTIONS (17)
  - Pneumonia mycoplasmal [None]
  - Weight decreased [None]
  - Vitamin B12 decreased [None]
  - Blood thyroid stimulating hormone increased [None]
  - Duodenitis [None]
  - Bone pain [None]
  - Myalgia [None]
  - Rhinitis [None]
  - Decreased appetite [None]
  - Abnormal faeces [None]
  - Frequent bowel movements [None]
  - Pollakiuria [None]
  - Pain in extremity [None]
  - Arthralgia [None]
  - Overdose [None]
  - Disease recurrence [None]
  - Abdominal pain upper [None]
